FAERS Safety Report 23173947 (Version 3)
Quarter: 2023Q4

REPORT INFORMATION
  Report Type: Spontaneous
  Country: US (occurrence: US)
  Receive Date: 20231111
  Receipt Date: 20231204
  Transmission Date: 20240110
  Serious: Yes (Hospitalization, Other)
  Sender: FDA-Public Use
  Company Number: US-PFIZER INC-PV202300183027

PATIENT
  Age: 78 Year
  Sex: Female

DRUGS (2)
  1. IBRANCE [Suspect]
     Active Substance: PALBOCICLIB
     Dosage: 100 MG
     Dates: end: 20231114
  2. FASLODEX [Suspect]
     Active Substance: FULVESTRANT
     Dosage: UNK
     Dates: start: 202310

REACTIONS (11)
  - Full blood count decreased [Unknown]
  - Pharyngeal haemorrhage [Unknown]
  - Presyncope [Unknown]
  - Fatigue [Unknown]
  - Epistaxis [Unknown]
  - Asthenia [Unknown]
  - Dizziness [Unknown]
  - Faeces discoloured [Unknown]
  - Depressed mood [Unknown]
  - Constipation [Unknown]
  - White blood cell count decreased [Unknown]

NARRATIVE: CASE EVENT DATE: 20230101
